FAERS Safety Report 19667175 (Version 3)
Quarter: 2021Q3

REPORT INFORMATION
  Report Type: Report from Study
  Country: US (occurrence: US)
  Receive Date: 20210806
  Receipt Date: 20210908
  Transmission Date: 20211014
  Serious: Yes (Other)
  Sender: FDA-Public Use
  Company Number: US-GLAXOSMITHKLINE-US2021AMR166314

PATIENT
  Age: 53 Year
  Sex: Female

DRUGS (1)
  1. BELANTAMAB MAFODOTIN. [Suspect]
     Active Substance: BELANTAMAB MAFODOTIN
     Indication: PRODUCT USED FOR UNKNOWN INDICATION
     Dosage: 300 MG, Z Q 21 DAYS
     Dates: start: 20210622, end: 20210622

REACTIONS (7)
  - Visual impairment [Not Recovered/Not Resolved]
  - Night blindness [Not Recovered/Not Resolved]
  - Eye disorder [Recovered/Resolved]
  - Diplopia [Not Recovered/Not Resolved]
  - Keratopathy [Unknown]
  - Retinal pigment epitheliopathy [Unknown]
  - Cataract [Unknown]

NARRATIVE: CASE EVENT DATE: 20210719
